FAERS Safety Report 11570971 (Version 1)
Quarter: 2015Q3

REPORT INFORMATION
  Report Type: Spontaneous
  Country: CA (occurrence: CA)
  Receive Date: 20150929
  Receipt Date: 20150929
  Transmission Date: 20151125
  Serious: Yes (Other)
  Sender: FDA-Public Use
  Company Number: CA-TEVA-596250USA

PATIENT
  Age: 38 Year
  Sex: Female
  Weight: 68.1 kg

DRUGS (2)
  1. EFFEXOR [Concomitant]
     Active Substance: VENLAFAXINE HYDROCHLORIDE
  2. PLAN B [Suspect]
     Active Substance: LEVONORGESTREL
     Indication: POST COITAL CONTRACEPTION
     Dosage: BOTH TAKEN TOGETHER
     Route: 065
     Dates: start: 201509, end: 201509

REACTIONS (1)
  - Haemorrhage [Not Recovered/Not Resolved]
